FAERS Safety Report 15128522 (Version 2)
Quarter: 2018Q3

REPORT INFORMATION
  Report Type: Report from Study
  Country: PT (occurrence: PT)
  Receive Date: 20180711
  Receipt Date: 20180801
  Transmission Date: 20181010
  Serious: Yes (Hospitalization)
  Sender: FDA-Public Use
  Company Number: PT-CONCORDIA PHARMACEUTICALS INC.-E2B_00011600

PATIENT
  Age: 15 Year
  Sex: Female

DRUGS (18)
  1. METHYLPREDNISOLONE. [Suspect]
     Active Substance: METHYLPREDNISOLONE
     Dosage: THREE DOSES OF 1G
  2. RITUXIMAB. [Suspect]
     Active Substance: RITUXIMAB
     Indication: SYSTEMIC LUPUS ERYTHEMATOSUS
     Dosage: 375 MG/M2 FOUR WEEKLY; RE?INITIATED LATER
     Route: 042
     Dates: start: 200702
  3. PREDNISOLONE. [Suspect]
     Active Substance: PREDNISOLONE
     Dosage: 40 MG, QD
     Route: 048
     Dates: start: 2004
  4. IMMUNOGLOBULIN [Concomitant]
     Dosage: 2 G/KG
     Route: 042
  5. ACETAMINOPHEN. [Concomitant]
     Active Substance: ACETAMINOPHEN
  6. RITUXIMAB. [Suspect]
     Active Substance: RITUXIMAB
     Indication: LUPUS NEPHRITIS
     Dosage: 375 MG/M2, UNK
     Dates: start: 200804
  7. HYDROCORTICONE [Suspect]
     Active Substance: HYDROCORTISONE
     Indication: LUPUS NEPHRITIS
     Dates: start: 200702
  8. IMMUNOGLOBULIN [Concomitant]
     Indication: LUPUS NEPHRITIS
     Dosage: 1.5 G/KG
     Route: 042
  9. MYCOPHENOLATE MOFETIL. [Suspect]
     Active Substance: MYCOPHENOLATE MOFETIL
     Indication: LUPUS NEPHRITIS
     Dosage: 500 MG, BID
     Route: 065
     Dates: start: 2006
  10. AZATHIOPRINE. [Suspect]
     Active Substance: AZATHIOPRINE
     Indication: LUPUS NEPHRITIS
     Route: 048
     Dates: start: 200602, end: 200602
  11. PREDNISOLONE. [Suspect]
     Active Substance: PREDNISOLONE
     Dosage: 45 MG, QD (1.4 MG/KG/DAY)
     Route: 048
     Dates: start: 2004
  12. PREDNISOLONE. [Suspect]
     Active Substance: PREDNISOLONE
     Route: 048
     Dates: start: 2006
  13. MYCOPHENOLATE MOFETIL. [Suspect]
     Active Substance: MYCOPHENOLATE MOFETIL
     Indication: SYSTEMIC LUPUS ERYTHEMATOSUS
  14. PREDNISOLONE. [Suspect]
     Active Substance: PREDNISOLONE
     Indication: LUPUS NEPHRITIS
     Dosage: 40 MG/KG, QD
     Route: 048
     Dates: start: 2007
  15. CYCLOPHOSPHAMIDE. [Suspect]
     Active Substance: CYCLOPHOSPHAMIDE
     Dosage: 600 MG/M2; CUMULATIVE DOSAGE: 5.6 G/M2 (6 MONTHLY AND 4 TRIMONTHLY DOSES)
     Route: 042
  16. CYCLOPHOSPHAMIDE. [Suspect]
     Active Substance: CYCLOPHOSPHAMIDE
     Dosage: 1 G/M2 MONTHLY
     Route: 042
     Dates: start: 2004
  17. CYCLOPHOSPHAMIDE. [Suspect]
     Active Substance: CYCLOPHOSPHAMIDE
     Indication: LUPUS NEPHRITIS
     Dosage: 0.5 G/M2; CUMULATIVE DOSE OF 6.1 G/M2
     Dates: start: 2007
  18. METHYLPREDNISOLONE. [Suspect]
     Active Substance: METHYLPREDNISOLONE
     Indication: LUPUS NEPHRITIS
     Dosage: 1 G, 3 DAYS PULSE THERAPY
     Route: 042
     Dates: start: 2004

REACTIONS (7)
  - Peritonitis [Recovered/Resolved]
  - Nausea [Unknown]
  - Rash [Unknown]
  - Product use in unapproved indication [Unknown]
  - Corynebacterium infection [Recovered/Resolved]
  - Upper respiratory tract infection [Unknown]
  - Vomiting [Unknown]

NARRATIVE: CASE EVENT DATE: 200602
